FAERS Safety Report 21033293 (Version 2)
Quarter: 2022Q3

REPORT INFORMATION
  Report Type: Spontaneous
  Country: US (occurrence: US)
  Receive Date: 20220701
  Receipt Date: 20220726
  Transmission Date: 20221026
  Serious: Yes (Hospitalization)
  Sender: FDA-Public Use
  Company Number: US-MYLANLABS-2022M1049531

PATIENT
  Age: 43 Year
  Sex: Male

DRUGS (12)
  1. PREDNISONE [Suspect]
     Active Substance: PREDNISONE
     Indication: Complex regional pain syndrome
     Dosage: 80 MILLIGRAM, QD
     Route: 048
  2. PREDNISONE [Suspect]
     Active Substance: PREDNISONE
     Indication: Ulcer
  3. FENTANYL [Suspect]
     Active Substance: FENTANYL
     Indication: Complex regional pain syndrome
     Dosage: 50 MICROGRAM, QH; 50 MICROGRAMS PER HOUR
     Route: 062
  4. MORPHINE [Suspect]
     Active Substance: MORPHINE
     Indication: Complex regional pain syndrome
     Dosage: UNK, Q3H; 15-30MG EVERY 3 H
     Route: 048
  5. MORPHINE [Suspect]
     Active Substance: MORPHINE
     Dosage: UNK, Q3H; 7.5-15 MG EVERY 3 HOURS
     Route: 048
  6. CLONAZEPAM [Concomitant]
     Active Substance: CLONAZEPAM
     Indication: Complex regional pain syndrome
     Dosage: 1 MILLIGRAM, BID
     Route: 048
  7. CLONIDINE [Concomitant]
     Active Substance: CLONIDINE
     Indication: Complex regional pain syndrome
     Dosage: 0.4 MILLIGRAM, BID
     Route: 048
  8. GABAPENTIN [Concomitant]
     Active Substance: GABAPENTIN
     Indication: Complex regional pain syndrome
     Dosage: 1200 MILLIGRAM, TID
     Route: 048
  9. NABUMETONE [Concomitant]
     Active Substance: NABUMETONE
     Indication: Complex regional pain syndrome
     Dosage: 1000 MILLIGRAM, BID
     Route: 048
  10. ESCITALOPRAM [Concomitant]
     Active Substance: ESCITALOPRAM OXALATE
     Indication: Depression
     Dosage: 20 MILLIGRAM, QD
     Route: 048
  11. ESCITALOPRAM [Concomitant]
     Active Substance: ESCITALOPRAM OXALATE
     Indication: Anxiety
  12. TESTOSTERONE [Concomitant]
     Active Substance: TESTOSTERONE
     Indication: Hypogonadism
     Dosage: UNK, BIWEEKLY
     Route: 065

REACTIONS (1)
  - Drug ineffective [Unknown]
